FAERS Safety Report 4380893-7 (Version None)
Quarter: 2004Q2

REPORT INFORMATION
  Report Type: 
  Country: None (occurrence: None)
  Receive Date: 20040616
  Receipt Date: 20040604
  Transmission Date: 20050107
  Serious: Yes (Death)
  Sender: FDA-Public Use
  Company Number: JP-JNJFOC-20031006525

PATIENT
  Age: 70 Year
  Sex: Female

DRUGS (3)
  1. FENTANYL [Suspect]
     Indication: CANCER PAIN
     Dosage: 2.5 MG, 1 IN 72 HOUR; TRANSDERMAL (SEE IMAGE)
     Route: 062
     Dates: start: 20030829, end: 20030907
  2. FENTANYL [Suspect]
     Indication: CANCER PAIN
     Dosage: 2.5 MG, 1 IN 72 HOUR; TRANSDERMAL (SEE IMAGE)
     Route: 062
     Dates: start: 20030907, end: 20030908
  3. DEXAMETHASONE SODIUM PHOSPHATE (INJECTION) [Concomitant]

REACTIONS (7)
  - ASPARTATE AMINOTRANSFERASE INCREASED [None]
  - BLOOD ALBUMIN DECREASED [None]
  - BLOOD AMYLASE DECREASED [None]
  - BLOOD UREA INCREASED [None]
  - PROTEIN TOTAL DECREASED [None]
  - RESPIRATORY DEPRESSION [None]
  - RESPIRATORY FAILURE [None]
